FAERS Safety Report 8431468-1 (Version None)
Quarter: 2012Q2

REPORT INFORMATION
  Report Type: 
  Country: None (occurrence: None)
  Receive Date: 20120613
  Receipt Date: 20120604
  Transmission Date: 20120825
  Serious: Yes (Other)
  Sender: FDA-Public Use
  Company Number: US-ELI_LILLY_AND_COMPANY-US201205005778

PATIENT
  Sex: Male

DRUGS (2)
  1. HUMALOG MIX 75/25 [Suspect]
     Indication: DIABETES MELLITUS
     Dosage: 32 U, BID
     Dates: start: 20070401
  2. HUMALOG MIX 75/25 [Suspect]
     Dosage: UNK

REACTIONS (8)
  - RENAL DISORDER [None]
  - SKIN GRAFT [None]
  - VISION BLURRED [None]
  - PHOTOPHOBIA [None]
  - BLOOD GLUCOSE INCREASED [None]
  - DRUG ADMINISTRATION ERROR [None]
  - SURGERY [None]
  - UNDERDOSE [None]
